FAERS Safety Report 13296423 (Version 2)
Quarter: 2019Q1

REPORT INFORMATION
  Report Type: Report from Study
  Country: US (occurrence: US)
  Receive Date: 20170305
  Receipt Date: 20190306
  Transmission Date: 20190417
  Serious: Yes (Hospitalization)
  Sender: FDA-Public Use
  Company Number: PHHO2017US002068

PATIENT
  Age: 69 Year
  Sex: Male
  Weight: 86 kg

DRUGS (3)
  1. TRAMETINIB [Suspect]
     Active Substance: TRAMETINIB
     Indication: MALIGNANT MELANOMA
     Dosage: 2 MG, QD (CUMULATIVE DOSE 32 MG)
     Route: 048
     Dates: start: 20140805, end: 20151119
  2. IPILIMUMAB [Suspect]
     Active Substance: IPILIMUMAB
     Indication: MALIGNANT MELANOMA
     Dosage: 3 MG/KG, EVERY 21 DAYS X 4 DOSES (TREATMENT MAY CONTINUE IF NO PROGRESSION)
     Route: 042
     Dates: start: 20140805, end: 20141107
  3. GSK2118436 [Suspect]
     Active Substance: DABRAFENIB
     Indication: MALIGNANT MELANOMA
     Dosage: 150 MG, BID (CUMULATIVE DOSE 4800 MG)
     Route: 048
     Dates: start: 20140805, end: 20151119

REACTIONS (3)
  - Malaise [Not Recovered/Not Resolved]
  - Pyrexia [Not Recovered/Not Resolved]
  - Influenza like illness [Not Recovered/Not Resolved]

NARRATIVE: CASE EVENT DATE: 20151206
